FAERS Safety Report 4749478-4 (Version None)
Quarter: 2005Q3

REPORT INFORMATION
  Report Type: 
  Country: None (occurrence: None)
  Receive Date: 20050822
  Receipt Date: 20050404
  Transmission Date: 20060218
  Serious: Yes (Death)
  Sender: FDA-Public Use
  Company Number: 2005AC00519

PATIENT
  Age: 997 Month
  Sex: Male
  Weight: 70 kg

DRUGS (5)
  1. CASODEX [Suspect]
     Indication: PROSTATE CANCER
     Route: 048
     Dates: start: 20041201
  2. PLAVIX [Concomitant]
     Route: 048
  3. SELOKEN 100 [Concomitant]
     Route: 048
  4. OMEPRAZOL 40 [Concomitant]
     Route: 048
  5. FLUOXEMED [Concomitant]
     Route: 048

REACTIONS (4)
  - ACUTE RESPIRATORY DISTRESS SYNDROME [None]
  - ERYTHEMA [None]
  - MUSCLE SPASTICITY [None]
  - PRURITUS [None]
